FAERS Safety Report 4480004-3 (Version None)
Quarter: 2004Q4

REPORT INFORMATION
  Report Type: 
  Country: None (occurrence: None)
  Receive Date: 20041020
  Receipt Date: 20041012
  Transmission Date: 20050328
  Serious: Yes (Disabling, Other)
  Sender: FDA-Public Use
  Company Number: PHNU2004DE03516

PATIENT
  Sex: Female

DRUGS (5)
  1. ZOMETA [Suspect]
     Indication: METASTASES TO BONE
     Dosage: 4 MG, ONCE/SINGLE
     Dates: start: 20040801, end: 20040801
  2. ZOMETA [Suspect]
     Dosage: 4 MG, ONCE/SINGLE
     Dates: start: 20040901, end: 20040901
  3. ZOMETA [Suspect]
     Dosage: 4 MG, ONCE/SINGLE
     Dates: start: 20041007, end: 20041007
  4. VALORON N                          /00628301/ [Concomitant]
     Dosage: 1 DF, ONCE/SINGLE
     Route: 048
     Dates: start: 20041010, end: 20041010
  5. ANTIHYPERTENSIVES [Concomitant]
     Dosage: UNK, UNK
     Route: 065

REACTIONS (8)
  - ARTHRALGIA [None]
  - BALANCE DISORDER [None]
  - DIFFICULTY IN WALKING [None]
  - DIZZINESS [None]
  - FALL [None]
  - JOINT SWELLING [None]
  - MUSCULAR WEAKNESS [None]
  - PARAESTHESIA [None]
